FAERS Safety Report 6053494-2 (Version None)
Quarter: 2009Q1

REPORT INFORMATION
  Report Type: 
  Country: None (occurrence: None)
  Receive Date: 20090127
  Receipt Date: 20080630
  Transmission Date: 20090719
  Serious: Yes (Hospitalization)
  Sender: FDA-Public Use
  Company Number: US-TEVA-172615USA

PATIENT
  Sex: Female

DRUGS (9)
  1. COPAXONE [Suspect]
     Indication: MULTIPLE SCLEROSIS
     Route: 058
  2. RALOXIFENE HYDROCHLORIDE [Concomitant]
  3. CARVEDILOL [Concomitant]
  4. MORPHINE [Concomitant]
  5. BACLOFEN [Concomitant]
  6. OXYCET [Concomitant]
  7. METHOCARBAMOL [Concomitant]
  8. OXYBUTYNIN CHLORIDE [Concomitant]
  9. CALCITONIN SALMON [Concomitant]

REACTIONS (1)
  - INJECTION SITE RASH [None]
